FAERS Safety Report 6569301-5 (Version None)
Quarter: 2010Q1

REPORT INFORMATION
  Report Type: 
  Country: None (occurrence: None)
  Receive Date: 20100201
  Receipt Date: 20100201
  Transmission Date: 20100710
  Serious: Yes (Other)
  Sender: FDA-Public Use
  Company Number: None

PATIENT
  Age: 53 Year
  Sex: Male
  Weight: 75 kg

DRUGS (6)
  1. FLUPHENAZINE [Suspect]
     Indication: SCHIZOPHRENIA
     Dosage: 5MG BID PO
     Route: 048
     Dates: start: 20090824, end: 20090902
  2. FLUPHENAZINE DEC 25MG/ML [Suspect]
     Dosage: 25MG Q2 WEEKS IM
     Route: 030
     Dates: start: 20090824, end: 20090902
  3. COGENTIN [Concomitant]
  4. APAP PRN [Concomitant]
  5. ANTACID/ANTIGAS PRN [Concomitant]
  6. TUBERSOL [Concomitant]

REACTIONS (2)
  - INFECTION [None]
  - NEUTROPHIL COUNT DECREASED [None]
